FAERS Safety Report 9341000 (Version 1)
Quarter: 2013Q2

REPORT INFORMATION
  Report Type: Report from Study
  Country: DE (occurrence: DE)
  Receive Date: 20130610
  Receipt Date: 20130610
  Transmission Date: 20140414
  Serious: Yes (Hospitalization, Other)
  Sender: FDA-Public Use
  Company Number: DE-TEVA-411227USA

PATIENT
  Age: 55 Year
  Sex: Male
  Weight: 61 kg

DRUGS (6)
  1. BENDAMUSTINE [Suspect]
     Indication: MANTLE CELL LYMPHOMA STAGE IV
     Dates: start: 20130307
  2. BENDAMUSTINE [Suspect]
     Dates: start: 20130502
  3. RITUXIMAB [Suspect]
     Indication: MANTLE CELL LYMPHOMA STAGE IV
     Dates: start: 20130306
  4. RITUXIMAB [Suspect]
     Dates: start: 20130430
  5. TEMSIROLIMUS [Suspect]
     Indication: MANTLE CELL LYMPHOMA STAGE IV
     Dates: start: 20130307
  6. TEMSIROLIMUS [Suspect]
     Dates: start: 20130508

REACTIONS (2)
  - Mallory-Weiss syndrome [Recovered/Resolved]
  - Enterocolitis infectious [Recovered/Resolved]
